FAERS Safety Report 6878933-6 (Version None)
Quarter: 2010Q3

REPORT INFORMATION
  Report Type: 
  Country: None (occurrence: None)
  Receive Date: 20100728
  Receipt Date: 20100720
  Transmission Date: 20110219
  Serious: Yes (Death, Hospitalization)
  Sender: FDA-Public Use
  Company Number: IT-BAYER-201032106GPV

PATIENT
  Age: 78 Year
  Sex: Male

DRUGS (4)
  1. SORAFENIB [Suspect]
     Indication: HEPATIC NEOPLASM MALIGNANT
     Dosage: TOTAL DAILY DOSE: 800 MG  UNIT DOSE: 200 MG
     Route: 048
     Dates: start: 20100618, end: 20100707
  2. CARDIASPIRIN [Concomitant]
     Route: 048
     Dates: start: 20020101
  3. LACIDIPINE [Concomitant]
     Dates: start: 20020101
  4. PERINDOPRIL [Concomitant]
     Dates: start: 20020101

REACTIONS (2)
  - HYPOTENSION [None]
  - RENAL FAILURE [None]
